FAERS Safety Report 6162331-7 (Version None)
Quarter: 2009Q2

REPORT INFORMATION
  Report Type: 
  Country: None (occurrence: None)
  Receive Date: 20090421
  Receipt Date: 20090413
  Transmission Date: 20091009
  Serious: Yes (Other)
  Sender: FDA-Public Use
  Company Number: US-ABBOTT-09P-163-0567844-00

PATIENT
  Sex: Female
  Weight: 68.1 kg

DRUGS (5)
  1. HUMIRA [Suspect]
     Indication: RHEUMATOID ARTHRITIS
     Route: 058
     Dates: start: 20070101, end: 20090201
  2. PREDNISONE [Suspect]
     Indication: RHEUMATOID ARTHRITIS
  3. IMURAN [Suspect]
     Indication: RHEUMATOID ARTHRITIS
     Dates: end: 20090201
  4. ACTONEL [Concomitant]
     Indication: OSTEOPOROSIS
     Route: 048
  5. FUROSEMIDE [Concomitant]
     Indication: DRUG USE FOR UNKNOWN INDICATION
     Route: 048

REACTIONS (6)
  - DYSPNOEA [None]
  - INCREASED UPPER AIRWAY SECRETION [None]
  - MYCOBACTERIUM AVIUM COMPLEX INFECTION [None]
  - PULMONARY MASS [None]
  - PYREXIA [None]
  - RHEUMATOID ARTHRITIS [None]
